FAERS Safety Report 5957056-4 (Version None)
Quarter: 2008Q4

REPORT INFORMATION
  Report Type: 
  Country: None (occurrence: None)
  Receive Date: 20081117
  Receipt Date: 20081117
  Transmission Date: 20090506
  Serious: Yes (Other)
  Sender: FDA-Public Use
  Company Number: None

PATIENT
  Age: 61 Year
  Sex: Female
  Weight: 72.5 kg

DRUGS (1)
  1. INFLIXIMAB 300MG IN 250CC NS CENTOCOR [Suspect]
     Indication: RHEUMATOID ARTHRITIS
     Dosage: 300MG IN 250CC NS EVERY 8 WEEKS IV DRIP
     Route: 041
     Dates: start: 20070301, end: 20081101

REACTIONS (6)
  - CHILLS [None]
  - FEELING ABNORMAL [None]
  - INFUSION RELATED REACTION [None]
  - MUSCLE SPASMS [None]
  - MYALGIA [None]
  - TREMOR [None]
